FAERS Safety Report 15372503 (Version 1)
Quarter: 2018Q3

REPORT INFORMATION
  Report Type: Report from Study
  Country: None (occurrence: FR)
  Receive Date: 20180911
  Receipt Date: 20180911
  Transmission Date: 20181010
  Serious: Yes (Life-Threatening, Hospitalization)
  Sender: FDA-Public Use
  Company Number: FR-BIOVERATIV-2018BV000477

PATIENT
  Age: 1 Year
  Sex: Male
  Weight: 8.6 kg

DRUGS (14)
  1. RFIXFC [Suspect]
     Active Substance: EFTRENONACOG ALFA
     Route: 042
     Dates: start: 20180801, end: 20180807
  2. RFIXFC [Suspect]
     Active Substance: EFTRENONACOG ALFA
     Route: 042
     Dates: start: 20180723, end: 20180731
  3. RFIXFC [Suspect]
     Active Substance: EFTRENONACOG ALFA
     Dosage: BOLUS INJECTION
     Route: 042
     Dates: start: 20180803, end: 20180722
  4. RFIXFC [Suspect]
     Active Substance: EFTRENONACOG ALFA
     Route: 042
     Dates: start: 20180807
  5. RFIXFC [Suspect]
     Active Substance: EFTRENONACOG ALFA
     Route: 042
     Dates: start: 20180811, end: 20180819
  6. RFIXFC [Suspect]
     Active Substance: EFTRENONACOG ALFA
     Dosage: SECOND INFUSION
     Route: 042
     Dates: start: 20180717
  7. RFIXFC [Suspect]
     Active Substance: EFTRENONACOG ALFA
     Indication: FACTOR IX DEFICIENCY
     Dosage: ON DEMAND
     Route: 042
     Dates: start: 20180110
  8. RFIXFC [Suspect]
     Active Substance: EFTRENONACOG ALFA
     Route: 042
     Dates: start: 20180717
  9. RFIXFC [Suspect]
     Active Substance: EFTRENONACOG ALFA
     Dosage: BOLUS
     Route: 042
     Dates: start: 20180817
  10. RFIXFC [Suspect]
     Active Substance: EFTRENONACOG ALFA
     Dosage: THIRD INFUSION ON 17?JUL?2018
     Route: 042
     Dates: start: 20180717, end: 20180720
  11. RFIXFC [Suspect]
     Active Substance: EFTRENONACOG ALFA
     Dosage: ON DEMAND
     Route: 042
     Dates: start: 20180416
  12. RFIXFC [Suspect]
     Active Substance: EFTRENONACOG ALFA
     Dosage: BOLUS INJECTION PRIOR TO SURGERY ON 20?JUL?2018 AND CONTINUING WITH EVERY 12 HOURS
     Route: 042
     Dates: start: 20180720, end: 20180722
  13. VITAMIN D [Concomitant]
     Active Substance: CHOLECALCIFEROL
     Indication: PRODUCT USED FOR UNKNOWN INDICATION
     Route: 065
     Dates: start: 201710
  14. RFIXFC [Suspect]
     Active Substance: EFTRENONACOG ALFA
     Dosage: BOLUS
     Route: 042
     Dates: start: 20180823

REACTIONS (1)
  - Spinal cord haematoma [Not Recovered/Not Resolved]

NARRATIVE: CASE EVENT DATE: 20180717
